FAERS Safety Report 4869763-5 (Version None)
Quarter: 2005Q4

REPORT INFORMATION
  Report Type: 
  Country: None (occurrence: None)
  Receive Date: 20051227
  Receipt Date: 20051216
  Transmission Date: 20060501
  Serious: Yes (Hospitalization)
  Sender: FDA-Public Use
  Company Number: 2005AP000984

PATIENT
  Age: 68 Year
  Sex: Female

DRUGS (7)
  1. GLIPIZIDE [Suspect]
     Indication: DIABETES MELLITUS NON-INSULIN-DEPENDENT
     Dosage: 2.5 MG;QD;PO
     Route: 048
     Dates: start: 20040101
  2. HYOSCYAMINE [Concomitant]
  3. DYNACIRC [Concomitant]
  4. SYNTHROID [Concomitant]
  5. NABUMETONE [Concomitant]
  6. CELEXA [Concomitant]
  7. VALIUM [Concomitant]

REACTIONS (3)
  - CHOLELITHIASIS [None]
  - DEHYDRATION [None]
  - INFLUENZA [None]
